FAERS Safety Report 4486845-0 (Version None)
Quarter: 2004Q3

REPORT INFORMATION
  Report Type: 
  Country: None (occurrence: None)
  Receive Date: 20040921
  Receipt Date: 20040423
  Transmission Date: 20050211
  Serious: No
  Sender: FDA-Public Use
  Company Number: 163-20785-04020777

PATIENT
  Age: 43 Year
  Sex: Female

DRUGS (1)
  1. THALOMID [Suspect]
     Indication: METASTATIC MALIGNANT MELANOMA
     Dosage: 200 MG, DAILY, ORAL
     Route: 048
     Dates: start: 20020313, end: 20040213

REACTIONS (1)
  - DEEP VEIN THROMBOSIS [None]
